FAERS Safety Report 8784106 (Version 3)
Quarter: 2012Q4

REPORT INFORMATION
  Report Type: 
  Country: US (occurrence: US)
  Receive Date: 20120913
  Receipt Date: 20121025
  Transmission Date: 20130627
  Serious: Yes (Hospitalization, Other)
  Sender: FDA-Public Use
  Company Number: US-009507513-1110USA04294

PATIENT

DRUGS (14)
  1. FOSAMAX [Suspect]
     Indication: OSTEOPENIA
     Dosage: 70 mg, qw
     Route: 048
     Dates: start: 200106, end: 200908
  2. ALENDRONATE TEVA [Suspect]
     Indication: OSTEOPENIA
     Dosage: 70 mg, qw
     Route: 048
     Dates: start: 200908, end: 20101017
  3. HORMONES (UNSPECIFIED) [Concomitant]
     Dosage: UNK
     Dates: start: 1995, end: 2001
  4. LEVOXYL [Concomitant]
     Dosage: UNK
     Dates: start: 2000
  5. LEVOTHYROXINE SODIUM [Concomitant]
     Dosage: UNK
     Dates: start: 2000
  6. PRAVACHOL [Concomitant]
     Dosage: UNK
     Dates: start: 2001
  7. PRAVASTATIN SODIUM [Concomitant]
     Dosage: UNK
     Dates: start: 2001
  8. ASCORBIC ACID [Concomitant]
     Dosage: 500 mg, UNK
     Dates: start: 1990
  9. VITAMINS (UNSPECIFIED) [Concomitant]
     Dosage: UNK
     Dates: start: 2001
  10. VITAMIN D (UNSPECIFIED) [Concomitant]
     Dosage: 2000 mg, UNK
     Dates: start: 1998
  11. CALCIUM (UNSPECIFIED) (+) VITAMIN D (UNSPECIFIED) [Concomitant]
     Dosage: 500 mg, UNK
     Dates: start: 1990
  12. PROTONIX [Concomitant]
     Dosage: UNK
     Dates: start: 2000, end: 2001
  13. NEXIUM [Concomitant]
     Dosage: UNK
     Dates: start: 2001, end: 201004
  14. EVISTA [Concomitant]

REACTIONS (31)
  - Open reduction of fracture [Unknown]
  - Thyroidectomy [Unknown]
  - Pneumonia [Unknown]
  - Rib fracture [Unknown]
  - Cataract operation [Unknown]
  - Cholecystectomy [Unknown]
  - Femur fracture [Unknown]
  - Syncope [Unknown]
  - Wrist fracture [Unknown]
  - Ankle fracture [Unknown]
  - Fall [Unknown]
  - Road traffic accident [Unknown]
  - Biopsy breast [Unknown]
  - Vitamin D deficiency [Unknown]
  - Meniscus cyst [Unknown]
  - Patellofemoral pain syndrome [Unknown]
  - Synovial cyst [Unknown]
  - Cyst [Unknown]
  - Chronic obstructive pulmonary disease [Not Recovered/Not Resolved]
  - Joint effusion [Unknown]
  - Hypertonic bladder [Unknown]
  - Meniscus injury [Unknown]
  - Osteoarthritis [Not Recovered/Not Resolved]
  - Dry skin [Unknown]
  - Cardiovascular insufficiency [Unknown]
  - Intraocular pressure increased [Unknown]
  - Neck pain [Unknown]
  - Back pain [Not Recovered/Not Resolved]
  - Arthralgia [Not Recovered/Not Resolved]
  - Drug ineffective [Unknown]
  - Headache [Unknown]
